FAERS Safety Report 4336970-X (Version None)
Quarter: 2004Q1

REPORT INFORMATION
  Report Type: 
  Country: None (occurrence: None)
  Receive Date: 20040329
  Receipt Date: 20040206
  Transmission Date: 20041129
  Serious: No
  Sender: FDA-Public Use
  Company Number: USA040258721

PATIENT
  Age: 5 Year
  Sex: Male
  Weight: 18 kg

DRUGS (5)
  1. STRATTERA [Suspect]
     Indication: ATTENTION DEFICIT/HYPERACTIVITY DISORDER
     Dosage: 10 MG/IN THE MORNING
     Dates: start: 20040203
  2. PAXIL [Concomitant]
  3. SEROQUEL [Concomitant]
  4. DEPAKOTE [Concomitant]
  5. TENEX [Concomitant]

REACTIONS (5)
  - AGGRESSION [None]
  - DRUG INTERACTION [None]
  - MIDDLE INSOMNIA [None]
  - PSYCHOMOTOR HYPERACTIVITY [None]
  - SOMNOLENCE [None]
